FAERS Safety Report 10592832 (Version 1)
Quarter: 2014Q4

REPORT INFORMATION
  Report Type: Spontaneous
  Country: US (occurrence: None)
  Receive Date: 20141118
  Receipt Date: 20141118
  Transmission Date: 20150529
  Serious: No
  Sender: FDA-Public Use
  Company Number: None

PATIENT
  Age: 21 Year
  Sex: Female
  Weight: 50.8 kg

DRUGS (2)
  1. MIRVASO [Suspect]
     Active Substance: BRIMONIDINE TARTRATE
     Indication: ROSACEA
     Dosage: ONCE DAILY APPLIED TO A SURGACE USUALLY THE SKIN
     Dates: start: 20131001, end: 20141116
  2. MIRVASO [Suspect]
     Active Substance: BRIMONIDINE TARTRATE
     Indication: INFLAMMATION
     Dosage: ONCE DAILY APPLIED TO A SURGACE USUALLY THE SKIN
     Dates: start: 20131001, end: 20141116

REACTIONS (2)
  - Application site erythema [None]
  - Erythema [None]
